FAERS Safety Report 15867441 (Version 1)
Quarter: 2019Q1

REPORT INFORMATION
  Report Type: Spontaneous
  Country: US (occurrence: US)
  Receive Date: 20190125
  Receipt Date: 20190125
  Transmission Date: 20190417
  Serious: No
  Sender: FDA-Public Use
  Company Number: US-MYLANLABS-2019M1003275

PATIENT
  Age: 42 Year
  Sex: Female

DRUGS (1)
  1. EMSAM [Suspect]
     Active Substance: SELEGILINE
     Indication: DEPRESSION
     Dosage: UNK
     Route: 062

REACTIONS (3)
  - Application site pain [Recovering/Resolving]
  - Application site urticaria [Recovering/Resolving]
  - Application site erythema [Recovering/Resolving]
